FAERS Safety Report 21994587 (Version 2)
Quarter: 2024Q2

REPORT INFORMATION
  Report Type: Report from Study
  Country: FR (occurrence: FR)
  Receive Date: 20230215
  Receipt Date: 20240620
  Transmission Date: 20240716
  Serious: Yes (Death)
  Sender: FDA-Public Use
  Company Number: FR-ABBVIE-20K-056-3572542-00

PATIENT
  Age: 89 Year
  Sex: Male
  Weight: 65 kg

DRUGS (30)
  1. VENETOCLAX [Suspect]
     Active Substance: VENETOCLAX
     Indication: Chronic lymphocytic leukaemia
     Route: 048
     Dates: start: 20200901, end: 20200907
  2. VENETOCLAX [Suspect]
     Active Substance: VENETOCLAX
     Indication: Chronic lymphocytic leukaemia
     Route: 048
     Dates: start: 20200908, end: 20200914
  3. VENETOCLAX [Suspect]
     Active Substance: VENETOCLAX
     Indication: Chronic lymphocytic leukaemia
     Route: 048
     Dates: start: 20200915, end: 20200921
  4. VENETOCLAX [Suspect]
     Active Substance: VENETOCLAX
     Indication: Chronic lymphocytic leukaemia
     Route: 048
     Dates: start: 20200922, end: 20200928
  5. VENETOCLAX [Suspect]
     Active Substance: VENETOCLAX
     Indication: Chronic lymphocytic leukaemia
     Route: 048
     Dates: start: 20200929, end: 20220628
  6. REPAGLINIDE [Concomitant]
     Active Substance: REPAGLINIDE
     Indication: Prophylaxis
     Dates: start: 20200831
  7. TOUJEO [Concomitant]
     Active Substance: INSULIN GLARGINE
     Indication: Prophylaxis
     Dates: start: 20200831
  8. METFORMIN PAMOATE [Concomitant]
     Active Substance: METFORMIN PAMOATE
     Indication: Prophylaxis
     Dates: start: 20200831
  9. TRELEGY ELLIPTA [Concomitant]
     Active Substance: FLUTICASONE FUROATE\UMECLIDINIUM BROMIDE\VILANTEROL TRIFENATATE
     Indication: Prophylaxis
     Dates: start: 20200831
  10. KAYEXALATE [Concomitant]
     Active Substance: SODIUM POLYSTYRENE SULFONATE
     Indication: Prophylaxis
     Dates: start: 20200831
  11. PRAVASTATIN [Concomitant]
     Active Substance: PRAVASTATIN
     Indication: Prophylaxis
     Dates: start: 20200831
  12. FUROSEMIDE [Concomitant]
     Active Substance: FUROSEMIDE
     Indication: Prophylaxis
     Dates: start: 20200831
  13. AMIODARONE [Concomitant]
     Active Substance: AMIODARONE
     Indication: Prophylaxis
     Dates: start: 20200831
  14. CALCIUM\CHOLECALCIFEROL [Concomitant]
     Active Substance: CALCIUM\CHOLECALCIFEROL
     Indication: Prophylaxis
     Dates: start: 20200831
  15. Vildagliptine eg [Concomitant]
     Indication: Prophylaxis
     Dates: start: 20200831
  16. Previscan [Concomitant]
     Indication: Prophylaxis
     Dates: start: 20200831
  17. RITUXIMAB [Concomitant]
     Active Substance: RITUXIMAB
     Indication: Chronic lymphocytic leukaemia
     Dosage: 6 CURES
     Dates: start: 20200901, end: 20210119
  18. ALLOPURINOL [Concomitant]
     Active Substance: ALLOPURINOL
     Indication: Prophylaxis
     Dates: start: 20200902
  19. ONDANSETRON [Concomitant]
     Active Substance: ONDANSETRON
     Indication: Prophylaxis
     Dates: start: 20200901, end: 20200903
  20. ONDANSETRON [Concomitant]
     Active Substance: ONDANSETRON
     Indication: Prophylaxis
  21. SODIUM CHLORIDE [Concomitant]
     Active Substance: SODIUM CHLORIDE
     Indication: Fluid replacement
     Dates: start: 20200831, end: 20200904
  22. VALACYCLOVIR HYDROCHLORIDE [Concomitant]
     Active Substance: VALACYCLOVIR HYDROCHLORIDE
     Indication: Prophylaxis
     Dates: start: 20200904
  23. LEUCOVORIN CALCIUM [Concomitant]
     Active Substance: LEUCOVORIN CALCIUM
     Indication: Prophylaxis
     Dates: start: 20200904
  24. ACETAMINOPHEN [Concomitant]
     Active Substance: ACETAMINOPHEN
     Indication: Rash
     Dates: start: 20200903, end: 20200903
  25. ACETAMINOPHEN [Concomitant]
     Active Substance: ACETAMINOPHEN
     Indication: Rash
     Dosage: LAST ADMIN DATE:09-2020
     Dates: start: 20200901
  26. ACETAMINOPHEN [Concomitant]
     Active Substance: ACETAMINOPHEN
     Indication: Rash
  27. BACTRIM [Concomitant]
     Active Substance: SULFAMETHOXAZOLE\TRIMETHOPRIM
     Indication: Prophylaxis
     Dates: start: 20200904
  28. METHYLPREDNISOLONE [Concomitant]
     Active Substance: METHYLPREDNISOLONE
     Indication: Premedication
     Dates: start: 20200901
  29. DEXTROSE\POTASSIUM CHLORIDE\SODIUM CHLORIDE [Concomitant]
     Active Substance: DEXTROSE\POTASSIUM CHLORIDE\SODIUM CHLORIDE
     Indication: Premedication
     Dosage: OSMOTAN
     Dates: start: 20200901
  30. OSMOTAN [Concomitant]
     Active Substance: DEXTROSE\POTASSIUM CHLORIDE\SODIUM CHLORIDE
     Indication: Premedication
     Dates: start: 20200901

REACTIONS (17)
  - Pneumonia [Fatal]
  - Gait disturbance [Not Recovered/Not Resolved]
  - Hyperglycaemia [Recovered/Resolved]
  - Bradycardia [Recovered/Resolved]
  - Hypoalbuminaemia [Not Recovered/Not Resolved]
  - Off label use [Not Recovered/Not Resolved]
  - Cognitive disorder [Not Recovered/Not Resolved]
  - Hyperkeratosis [Not Recovered/Not Resolved]
  - Hyperuricaemia [Not Recovered/Not Resolved]
  - Insomnia [Not Recovered/Not Resolved]
  - Rash [Recovered/Resolved]
  - Anaemia [Not Recovered/Not Resolved]
  - Constipation [Not Recovered/Not Resolved]
  - Hyperkalaemia [Recovered/Resolved]
  - Hypocalcaemia [Recovered/Resolved]
  - Dehydration [Fatal]
  - Memory impairment [Not Recovered/Not Resolved]

NARRATIVE: CASE EVENT DATE: 20200901
